FAERS Safety Report 7908535-1 (Version None)
Quarter: 2011Q4

REPORT INFORMATION
  Report Type: 
  Country: None (occurrence: None)
  Receive Date: 20111111
  Receipt Date: 20111107
  Transmission Date: 20120403
  Serious: Yes (Hospitalization)
  Sender: FDA-Public Use
  Company Number: PHHY2011CN098141

PATIENT
  Age: 92 Year
  Sex: Male

DRUGS (5)
  1. ZOMETA [Suspect]
     Indication: METASTASES TO BONE
     Dosage: 4 MG, ONCE TIME
     Route: 042
     Dates: start: 20110901
  2. ASPIRIN [Concomitant]
     Dosage: 200 MG/DAY
     Route: 048
  3. TRIPTORELIN [Concomitant]
     Dosage: 15 MG, UNK
     Route: 030
  4. NORVASC [Concomitant]
     Dosage: 1 DF/DAY
     Route: 048
  5. CASODEX [Concomitant]
     Dosage: 5 MG/DAY
     Route: 048

REACTIONS (4)
  - PYREXIA [None]
  - CHILLS [None]
  - DYSPNOEA [None]
  - LIP DISCOLOURATION [None]
